FAERS Safety Report 18349486 (Version 13)
Quarter: 2021Q4

REPORT INFORMATION
  Report Type: Report from Study
  Country: US (occurrence: US)
  Receive Date: 20201006
  Receipt Date: 20211203
  Transmission Date: 20220303
  Serious: Yes (Other)
  Sender: FDA-Public Use
  Company Number: US-NOVARTISPH-NVSC2020US263670

PATIENT
  Age: 53 Year
  Sex: Female

DRUGS (5)
  1. KESIMPTA [Suspect]
     Active Substance: OFATUMUMAB
     Indication: Multiple sclerosis
     Dosage: UNK
     Route: 065
  2. KESIMPTA [Suspect]
     Active Substance: OFATUMUMAB
     Dosage: 20 MG, QMO (SOLUTION)
     Route: 058
     Dates: start: 20200926
  3. KESIMPTA [Suspect]
     Active Substance: OFATUMUMAB
     Dosage: UNK UNK, QMO
     Route: 058
     Dates: start: 20201003
  4. COPAXONE [Concomitant]
     Active Substance: GLATIRAMER ACETATE
     Indication: Product used for unknown indication
     Dosage: UNK
     Route: 065
  5. AVONEX [Concomitant]
     Active Substance: INTERFERON BETA-1A
     Indication: Product used for unknown indication
     Dosage: UNK
     Route: 065

REACTIONS (16)
  - Loss of consciousness [Unknown]
  - Vertigo positional [Unknown]
  - Eating disorder [Unknown]
  - Blood glucose decreased [Not Recovered/Not Resolved]
  - Dizziness [Unknown]
  - Cold sweat [Unknown]
  - Hyperhidrosis [Recovered/Resolved]
  - Pain [Recovered/Resolved]
  - Chills [Recovered/Resolved]
  - Myalgia [Unknown]
  - Fatigue [Not Recovered/Not Resolved]
  - Headache [Recovered/Resolved]
  - Pyrexia [Not Recovered/Not Resolved]
  - Bone pain [Not Recovered/Not Resolved]
  - Arthralgia [Not Recovered/Not Resolved]
  - Anxiety [Not Recovered/Not Resolved]

NARRATIVE: CASE EVENT DATE: 20200926
